FAERS Safety Report 4268859-9 (Version None)
Quarter: 2004Q1

REPORT INFORMATION
  Report Type: 
  Country: None (occurrence: None)
  Receive Date: 20040109
  Receipt Date: 20031229
  Transmission Date: 20041129
  Serious: Yes (Other)
  Sender: FDA-Public Use
  Company Number: USA030947060

PATIENT
  Age: 49 Year
  Sex: Female
  Weight: 54 kg

DRUGS (17)
  1. FORTEO [Suspect]
     Indication: OSTEOPOROSIS
     Dates: start: 20021201
  2. PROPULSID [Concomitant]
  3. PREVACID [Concomitant]
  4. FAMOTIDINE [Concomitant]
  5. MEDROXYPROGESTERONE [Concomitant]
  6. VITAMIN C [Concomitant]
  7. NASONEX [Concomitant]
  8. LORAZEPAM [Concomitant]
  9. CELEXA [Concomitant]
  10. CLARINEX [Concomitant]
  11. ALBUTEROL [Concomitant]
  12. CO-Q10 (UBIDECARENONE) [Concomitant]
  13. MELATONIN [Concomitant]
  14. GLUCOSAMINE CHONDROITIN [Concomitant]
  15. SUDAFED 12 HOUR [Concomitant]
  16. ASPIRIN [Concomitant]
  17. VITAMIN B COMPLEX CAP [Concomitant]

REACTIONS (3)
  - ARTHRALGIA [None]
  - BLOOD CREATINE PHOSPHOKINASE INCREASED [None]
  - FEELING ABNORMAL [None]
